FAERS Safety Report 18998396 (Version 2)
Quarter: 2021Q1

REPORT INFORMATION
  Report Type: Report from Study
  Country: CO (occurrence: CO)
  Receive Date: 20210311
  Receipt Date: 20210315
  Transmission Date: 20210420
  Serious: Yes (Death, Hospitalization, Other)
  Sender: FDA-Public Use
  Company Number: CO-IPSEN BIOPHARMACEUTICALS, INC.-2021-06232

PATIENT
  Age: 68 Year
  Sex: Male

DRUGS (1)
  1. SOMATULINE AUTOGEL [Suspect]
     Active Substance: LANREOTIDE ACETATE
     Indication: ACROMEGALY
     Dosage: 60 MG, QM
     Route: 058
     Dates: start: 20101101, end: 20210226

REACTIONS (7)
  - Septic shock [Not Recovered/Not Resolved]
  - Aspiration [Not Recovered/Not Resolved]
  - Cerebrovascular accident [Not Recovered/Not Resolved]
  - Headache [Not Recovered/Not Resolved]
  - Death [Fatal]
  - Seizure [Not Recovered/Not Resolved]
  - General physical health deterioration [Not Recovered/Not Resolved]

NARRATIVE: CASE EVENT DATE: 20210227
